FAERS Safety Report 8795456 (Version 3)
Quarter: 2015Q1

REPORT INFORMATION
  Report Type: Report from Study
  Country: US (occurrence: US)
  Receive Date: 20120917
  Receipt Date: 20150210
  Transmission Date: 20150721
  Serious: Yes (Death)
  Sender: FDA-Public Use
  Company Number: US-ROCHE-1128603

PATIENT
  Sex: Female

DRUGS (8)
  1. MAGNESIUM SULFATE. [Concomitant]
     Active Substance: MAGNESIUM SULFATE
  2. FAMOTIDIN [Concomitant]
     Route: 042
  3. TAXOL [Concomitant]
     Active Substance: PACLITAXEL
     Route: 042
  4. DEXAMETHASONE. [Concomitant]
     Active Substance: DEXAMETHASONE
     Route: 042
  5. AVASTIN [Suspect]
     Active Substance: BEVACIZUMAB
     Indication: OVARIAN CANCER
     Route: 042
     Dates: start: 20091012, end: 20100222
  6. AVASTIN [Suspect]
     Active Substance: BEVACIZUMAB
     Dosage: 840MG, 850MG, 860MG, 870MG
     Route: 042
  7. BENADRYL [Concomitant]
     Active Substance: DIPHENHYDRAMINE HYDROCHLORIDE
     Route: 042
  8. PEPCID [Concomitant]
     Active Substance: FAMOTIDINE
     Route: 042

REACTIONS (9)
  - Fatigue [Unknown]
  - Dyspnoea [Unknown]
  - Neuropathy peripheral [Unknown]
  - Arthralgia [Unknown]
  - Abdominal discomfort [Unknown]
  - Disease progression [Fatal]
  - Pain in extremity [Unknown]
  - Nasopharyngitis [Unknown]
  - Constipation [Unknown]
